FAERS Safety Report 24994697 (Version 1)
Quarter: 2025Q1

REPORT INFORMATION
  Report Type: Spontaneous
  Country: US (occurrence: None)
  Receive Date: 20250220
  Receipt Date: 20250220
  Transmission Date: 20250408
  Serious: Yes (Other)
  Sender: FDA-CTU
  Company Number: None

PATIENT
  Age: 30 Year
  Sex: Female

DRUGS (1)
  1. OSELTAMIVIR [Suspect]
     Active Substance: OSELTAMIVIR
     Indication: Influenza virus test positive
     Dosage: OTHER QUANTITY : 10 CAPSULE(S);?FREQUENCY : TWICE A DAY;?
     Route: 048
     Dates: start: 20250128, end: 20250201

REACTIONS (6)
  - Rash [None]
  - Pain in extremity [None]
  - Peripheral swelling [None]
  - Dermatitis [None]
  - Erythema multiforme [None]
  - Infection [None]

NARRATIVE: CASE EVENT DATE: 20250213
